FAERS Safety Report 6914602-1 (Version None)
Quarter: 2010Q3

REPORT INFORMATION
  Report Type: 
  Country: None (occurrence: None)
  Receive Date: 20100804
  Receipt Date: 20100804
  Transmission Date: 20110219
  Serious: No
  Sender: FDA-Public Use
  Company Number: None

PATIENT
  Sex: Female
  Weight: 46.7 kg

DRUGS (2)
  1. CEFDINIR [Suspect]
     Indication: URINARY TRACT INFECTION
     Dosage: CEFDINIR 300MG BID P.O.
     Route: 048
     Dates: end: 20100714
  2. CEFTRIAXONE [Suspect]
     Dosage: CEFTRIAXONE 500MG Q24 HRS IVPB
     Route: 042
     Dates: start: 20100713, end: 20100715

REACTIONS (1)
  - NEUTROPENIA [None]
